FAERS Safety Report 4496309-6 (Version None)
Quarter: 2004Q3

REPORT INFORMATION
  Report Type: 
  Country: None (occurrence: None)
  Receive Date: 20040921
  Receipt Date: 20040317
  Transmission Date: 20050211
  Serious: Yes (Hospitalization)
  Sender: FDA-Public Use
  Company Number: 163-20785-04030483 (0)

PATIENT
  Age: 62 Year
  Sex: Male

DRUGS (31)
  1. THALOMID [Suspect]
     Indication: MULTIPLE MYELOMA
     Dosage: 200 MG, GOD, ORAL
     Route: 048
     Dates: start: 19990330, end: 19990430
  2. THALOMID [Suspect]
     Indication: MULTIPLE MYELOMA
     Dosage: 400 MG, DAILY, ORAL
     Route: 048
     Dates: start: 19990105, end: 19990216
  3. THALOMID [Suspect]
     Indication: MULTIPLE MYELOMA
     Dosage: 200 MG, DAILY, ORAL
     Route: 048
     Dates: start: 19990217, end: 19990307
  4. THALOMID [Suspect]
     Indication: MULTIPLE MYELOMA
     Dosage: 200 MG, DAILY, ORAL
     Route: 048
     Dates: start: 19990516, end: 19990606
  5. THALOMID [Suspect]
     Indication: MULTIPLE MYELOMA
     Dosage: 200 MG, DAILY, ORAL
     Route: 048
     Dates: start: 19991005, end: 20000120
  6. THALOMID [Suspect]
     Indication: MULTIPLE MYELOMA
     Dosage: 200 MG, GOD, ORAL
     Route: 048
     Dates: start: 20000224, end: 20000312
  7. THALOMID [Suspect]
     Indication: MULTIPLE MYELOMA
     Dosage: 300 MG, DAILY, ORAL
     Route: 048
     Dates: start: 20000313, end: 20000317
  8. THALOMID [Suspect]
     Indication: MULTIPLE MYELOMA
     Dosage: 250 MG, DAILY, ORAL
     Route: 048
     Dates: start: 20000318, end: 20000320
  9. THALOMID [Suspect]
     Indication: MULTIPLE MYELOMA
     Dosage: 300 MG, DAILY, ORAL
     Route: 048
     Dates: start: 20000406, end: 20000506
  10. THALOMID [Suspect]
     Indication: MULTIPLE MYELOMA
     Dosage: 300 MG, DAILY, ORAL
     Route: 048
     Dates: start: 20000803, end: 20000903
  11. THALOMID [Suspect]
     Indication: MULTIPLE MYELOMA
     Dosage: 200 MG, DAILY, ORAL
     Route: 048
     Dates: start: 20001016, end: 20001116
  12. THALOMID [Suspect]
     Indication: MULTIPLE MYELOMA
     Dosage: 150 MG, DAILY, ORAL
     Route: 048
     Dates: start: 20010222, end: 20010322
  13. THALOMID [Suspect]
     Indication: MULTIPLE MYELOMA
     Dosage: 150 MG, DAILY, ORAL
     Route: 048
     Dates: start: 20010403, end: 20010415
  14. THALOMID [Suspect]
     Indication: MULTIPLE MYELOMA
     Dosage: 200 MG, DAILY, ORAL
     Route: 048
     Dates: start: 20010416, end: 20010831
  15. THALOMID [Suspect]
     Indication: MULTIPLE MYELOMA
     Dosage: 200 MG, DAILY, ORAL
     Route: 048
     Dates: start: 20011002, end: 20011102
  16. THALOMID [Suspect]
     Indication: MULTIPLE MYELOMA
     Dosage: 50 MG, DAILY, ORAL
     Route: 048
     Dates: start: 20020429, end: 20020528
  17. THALOMID [Suspect]
     Indication: MULTIPLE MYELOMA
     Dosage: 50 MG, DAILY, ORAL
     Route: 048
     Dates: start: 20020620, end: 20020719
  18. THALOMID [Suspect]
     Indication: MULTIPLE MYELOMA
     Dosage: 50 MG, DAILY, ORAL
     Route: 048
     Dates: start: 20020819, end: 20020919
  19. THALOMID [Suspect]
     Indication: MULTIPLE MYELOMA
     Dosage: 50 MG, DAILY, ORAL
     Route: 048
     Dates: start: 20021021, end: 20021121
  20. THALOMID [Suspect]
     Dosage: 50 MG, GOD, ORAL
     Route: 048
     Dates: start: 20021230, end: 20030130
  21. THALOMID [Suspect]
     Dosage: 50 MG, GOD, ORAL
     Route: 048
     Dates: start: 20030220, end: 20030320
  22. THALOMID [Suspect]
     Dosage: 50 MG, GOD, ORAL
     Route: 048
     Dates: start: 20030426, end: 20030526
  23. THALOMID [Suspect]
     Dosage: 50 MG, GOD, ORAL
     Route: 048
     Dates: start: 20030704, end: 20030704
  24. THALOMID [Suspect]
     Dosage: 50 MG, GOD, ORAL
     Route: 048
     Dates: start: 20040122
  25. CYCLOPHOSPHAMIDE (CYCLOPHOSPHAMIDE) (INJECTION FOR INFUSION) [Suspect]
     Indication: MULTIPLE MYELOMA
     Dosage: 1462 MG, DAILY, INTRAVENOUS
     Route: 042
     Dates: start: 19990401, end: 19990404
  26. AREDIA [Concomitant]
  27. ALPHA INTERFERON (INTERFERON ALFA) [Concomitant]
  28. ACYCLOVIR [Concomitant]
  29. NEURONTIN [Concomitant]
  30. PRILOSEC [Concomitant]
  31. PHENERGAN [Concomitant]

REACTIONS (4)
  - BASAL CELL CARCINOMA [None]
  - ENDOCARDITIS [None]
  - PYREXIA [None]
  - STAPHYLOCOCCAL INFECTION [None]
